FAERS Safety Report 8228268-4 (Version None)
Quarter: 2012Q1

REPORT INFORMATION
  Report Type: 
  Country: None (occurrence: None)
  Receive Date: 20120322
  Receipt Date: 20111021
  Transmission Date: 20120608
  Serious: No
  Sender: FDA-Public Use
  Company Number: US-BRISTOL-MYERS SQUIBB COMPANY-16189037

PATIENT
  Age: 68 Year
  Sex: Female

DRUGS (5)
  1. NAMENDA [Concomitant]
  2. LOVASTATIN [Concomitant]
  3. ADVAIR DISKUS 100/50 [Concomitant]
     Dosage: 1DF:500/50 UNIT NOS
  4. SINGULAIR [Concomitant]
  5. ERBITUX [Suspect]
     Indication: SQUAMOUS CELL CARCINOMA
     Dosage: NO OF DOSES:2
     Dates: start: 20111001

REACTIONS (3)
  - RASH [None]
  - ONYCHOCLASIS [None]
  - PRURITUS [None]
